FAERS Safety Report 5354942-3 (Version None)
Quarter: 2007Q2

REPORT INFORMATION
  Report Type: 
  Country: None (occurrence: None)
  Receive Date: 20070521
  Receipt Date: 20070323
  Transmission Date: 20071010
  Serious: No
  Sender: FDA-Public Use
  Company Number: WAES 0703USA04638

PATIENT
  Age: 58 Year
  Sex: Female

DRUGS (3)
  1. JANUVIA [Suspect]
     Indication: DIABETES MELLITUS
     Dosage: 100 MG/DAILY/PO
     Route: 048
     Dates: start: 20070321
  2. AVAPRO [Concomitant]
  3. GLYBURIDE [Concomitant]

REACTIONS (3)
  - ASTHENIA [None]
  - HOT FLUSH [None]
  - NAUSEA [None]
